FAERS Safety Report 20903223 (Version 2)
Quarter: 2022Q3

REPORT INFORMATION
  Report Type: Spontaneous
  Country: PL (occurrence: PL)
  Receive Date: 20220601
  Receipt Date: 20220628
  Transmission Date: 20221026
  Serious: Yes (Other)
  Sender: FDA-Public Use
  Company Number: PL-NOVARTISPH-NVSC2022PL123762

PATIENT
  Age: 18 Year
  Sex: Male

DRUGS (4)
  1. RYDAPT [Suspect]
     Active Substance: MIDOSTAURIN
     Indication: Acute myeloid leukaemia
     Dosage: UNK
     Route: 065
     Dates: start: 202202
  2. RYDAPT [Suspect]
     Active Substance: MIDOSTAURIN
     Dosage: UNK
     Route: 065
     Dates: start: 202203
  3. CYTARABINE [Suspect]
     Active Substance: CYTARABINE
     Indication: Acute myeloid leukaemia
     Dosage: UNK((2G/M2)
     Route: 065
     Dates: start: 202203
  4. CYTARABINE [Suspect]
     Active Substance: CYTARABINE
     Dosage: UNK ((2G/M2)
     Route: 065
     Dates: start: 202204

REACTIONS (10)
  - Cerebral microhaemorrhage [Unknown]
  - Deafness unilateral [Unknown]
  - Procedural complication [Unknown]
  - Haemoglobin decreased [Unknown]
  - Leukocytosis [Unknown]
  - Platelet count decreased [Unknown]
  - C-reactive protein increased [Unknown]
  - Blood uric acid increased [Unknown]
  - Blood creatine increased [Unknown]
  - Off label use [Unknown]
